FAERS Safety Report 9452349 (Version 1)
Quarter: 2013Q3

REPORT INFORMATION
  Report Type: Spontaneous
  Country: US (occurrence: None)
  Receive Date: 20130808
  Receipt Date: 20130808
  Transmission Date: 20140515
  Serious: No
  Sender: FDA-Public Use
  Company Number: None

PATIENT
  Age: 51 Year
  Sex: Female
  Weight: 91.17 kg

DRUGS (1)
  1. MACROBID [Suspect]
     Indication: URINARY TRACT INFECTION
     Dosage: 100 MG PILL TWICE DAILY TAKEN BY MOUTH
     Route: 048
     Dates: start: 20130802, end: 20130804

REACTIONS (2)
  - Dysphagia [None]
  - Hypoaesthesia [None]
